FAERS Safety Report 6950841-1 (Version None)
Quarter: 2010Q3

REPORT INFORMATION
  Report Type: 
  Country: None (occurrence: None)
  Receive Date: 20100828
  Receipt Date: 20100226
  Transmission Date: 20110219
  Serious: No
  Sender: FDA-Public Use
  Company Number: US-ABBOTT-10P-163-0629799-00

PATIENT
  Sex: Female
  Weight: 72.64 kg

DRUGS (2)
  1. NIASPAN [Suspect]
     Indication: BLOOD CHOLESTEROL INCREASED
     Dates: start: 20080601, end: 20100224
  2. WELCHOL [Concomitant]
     Indication: BLOOD CHOLESTEROL INCREASED

REACTIONS (7)
  - BLOOD TRIGLYCERIDES INCREASED [None]
  - EXFOLIATIVE RASH [None]
  - PRURITUS [None]
  - RASH ERYTHEMATOUS [None]
  - RASH PRURITIC [None]
  - VULVOVAGINAL BURNING SENSATION [None]
  - VULVOVAGINAL PRURITUS [None]
